FAERS Safety Report 18116717 (Version 4)
Quarter: 2022Q3

REPORT INFORMATION
  Report Type: Report from Study
  Country: US (occurrence: US)
  Receive Date: 20200806
  Receipt Date: 20220720
  Transmission Date: 20221027
  Serious: Yes (Other)
  Sender: FDA-Public Use
  Company Number: US-ABBVIE-20K-163-3511117-00

PATIENT
  Sex: Male
  Weight: 106.2 kg

DRUGS (4)
  1. VENCLEXTA [Suspect]
     Active Substance: VENETOCLAX
     Indication: Acute myeloid leukaemia
     Dosage: TAKE 4 TABLET (100 MG) BY MOUTH EVERY DAY
     Route: 048
     Dates: start: 2020
  2. VENCLEXTA [Suspect]
     Active Substance: VENETOCLAX
     Dosage: TAKE 4 TABLET(S) BY MOUTH DAILY FOR 14 DAYS THAN STOP FOR 14 DAYS AND REPEAT EVERY 28?DAYS
     Route: 048
  3. VENCLEXTA [Suspect]
     Active Substance: VENETOCLAX
     Route: 048
  4. DACOGEN [Concomitant]
     Active Substance: DECITABINE
     Indication: Product used for unknown indication

REACTIONS (4)
  - Cerebrovascular accident [Unknown]
  - Off label use [Unknown]
  - White blood cell count decreased [Unknown]
  - Cardiac disorder [Not Recovered/Not Resolved]

NARRATIVE: CASE EVENT DATE: 20200101
